FAERS Safety Report 7191349-0 (Version None)
Quarter: 2010Q4

REPORT INFORMATION
  Report Type: 
  Country: None (occurrence: None)
  Receive Date: 20101223
  Receipt Date: 20101213
  Transmission Date: 20110411
  Serious: Yes (Life-Threatening, Hospitalization, Other)
  Sender: FDA-Public Use
  Company Number: DE-ROCHE-749283

PATIENT
  Sex: Male
  Weight: 57 kg

DRUGS (1)
  1. PEGINTERFERON ALFA-2A [Suspect]
     Route: 058
     Dates: start: 20100906, end: 20101210

REACTIONS (2)
  - CEREBRAL HAEMORRHAGE [None]
  - SYNCOPE [None]
